FAERS Safety Report 21813621 (Version 1)
Quarter: 2023Q1

REPORT INFORMATION
  Report Type: Report from Study
  Country: US (occurrence: US)
  Receive Date: 20230103
  Receipt Date: 20230103
  Transmission Date: 20230418
  Serious: No
  Sender: FDA-Public Use
  Company Number: US-ABBVIE-4218854

PATIENT
  Sex: Male

DRUGS (1)
  1. SKYRIZI [Suspect]
     Active Substance: RISANKIZUMAB-RZAA
     Indication: Psoriasis
     Dosage: FORM STRENGTH 150 MG. INJECT 1 PEN UNDER THE SKIN.?ONSET DATE OF  EVENT SECOND SKYRIZI DOSE DELAY...
     Route: 058
     Dates: start: 20220824

REACTIONS (1)
  - Intentional product misuse [Unknown]
